FAERS Safety Report 8197363-0 (Version None)
Quarter: 2012Q1

REPORT INFORMATION
  Report Type: 
  Country: None (occurrence: None)
  Receive Date: 20120309
  Receipt Date: 20120301
  Transmission Date: 20120608
  Serious: Yes (Hospitalization, Other)
  Sender: FDA-Public Use
  Company Number: BR-JNJFOC-20120301905

PATIENT
  Age: 32 Year
  Sex: Female
  Weight: 58 kg

DRUGS (3)
  1. DOMPERIDONE [Concomitant]
     Indication: GASTRITIS
     Dosage: STARTED 5 MONTHS PRIOR TO THE REPORT DATE
     Route: 065
     Dates: start: 20110101, end: 20120225
  2. LANSOPRAZOLE [Concomitant]
     Indication: GASTRITIS
     Dosage: STARTED 5 MONTHS PRIOR TO THE REPORT DATE
     Route: 065
     Dates: start: 20110101, end: 20120225
  3. HALDOL [Suspect]
     Indication: HEADACHE
     Route: 042
     Dates: start: 20120225, end: 20120225

REACTIONS (12)
  - DYSKINESIA [None]
  - DRY MOUTH [None]
  - TOOTH FRACTURE [None]
  - TONGUE DISORDER [None]
  - DRUG PRESCRIBING ERROR [None]
  - DIZZINESS [None]
  - SALIVARY HYPERSECRETION [None]
  - PHOTOPHOBIA [None]
  - HEADACHE [None]
  - MOTOR DYSFUNCTION [None]
  - SOMNOLENCE [None]
  - INCORRECT ROUTE OF DRUG ADMINISTRATION [None]
